FAERS Safety Report 9184525 (Version 1)
Quarter: 2013Q1

REPORT INFORMATION
  Report Type: Spontaneous
  Country: US (occurrence: US)
  Receive Date: 20130322
  Receipt Date: 20130322
  Transmission Date: 20140127
  Serious: Yes (Other)
  Sender: FDA-Public Use
  Company Number: US-ASTRAZENECA-2012SE19240

PATIENT
  Age: 65 Year
  Sex: Female

DRUGS (3)
  1. NEXIUM [Suspect]
     Route: 048
  2. ANTIBIOTICS [Concomitant]
  3. PHENERGAN [Concomitant]

REACTIONS (4)
  - Neoplasm malignant [Unknown]
  - Gastroenteritis viral [Unknown]
  - Pyrexia [Unknown]
  - Vomiting [Unknown]
